FAERS Safety Report 6651273-6 (Version None)
Quarter: 2010Q1

REPORT INFORMATION
  Report Type: 
  Country: None (occurrence: None)
  Receive Date: 20100325
  Receipt Date: 20091215
  Transmission Date: 20100710
  Serious: No
  Sender: FDA-Public Use
  Company Number: US-AMGEN-KDL380499

PATIENT
  Sex: Female

DRUGS (1)
  1. NEULASTA [Suspect]
     Indication: CHEMOTHERAPY
     Dates: start: 20091113

REACTIONS (3)
  - DYSPNOEA [None]
  - DYSPNOEA EXERTIONAL [None]
  - MALAISE [None]
